FAERS Safety Report 7684964-9 (Version None)
Quarter: 2011Q3

REPORT INFORMATION
  Report Type: 
  Country: None (occurrence: None)
  Receive Date: 20110816
  Receipt Date: 20110114
  Transmission Date: 20111222
  Serious: No
  Sender: FDA-Public Use
  Company Number: US-MYLANLABS-2011S1001210

PATIENT
  Age: 65 Year
  Sex: Female
  Weight: 61.24 kg

DRUGS (2)
  1. MELOXICAM [Suspect]
     Indication: LIGAMENT SPRAIN
     Route: 048
     Dates: start: 20110113
  2. CALCITRATE [Concomitant]
     Dates: start: 20050101

REACTIONS (1)
  - HALO VISION [None]
